FAERS Safety Report 5426314-4 (Version None)
Quarter: 2007Q3

REPORT INFORMATION
  Report Type: 
  Country: None (occurrence: None)
  Receive Date: 20070827
  Receipt Date: 20070802
  Transmission Date: 20080115
  Serious: Yes (Life-Threatening, Hospitalization)
  Sender: FDA-Public Use
  Company Number: JP-ASTRAZENECA-2007SE03268

PATIENT
  Age: 56 Year
  Sex: Male

DRUGS (4)
  1. CANDESARTAN CILEXETIL [Suspect]
     Indication: HYPERTENSION
     Route: 048
     Dates: start: 20060729, end: 20060729
  2. TENORMIN [Suspect]
     Route: 048
     Dates: start: 20060729, end: 20060729
  3. GASPORT [Suspect]
     Route: 048
     Dates: start: 20060729, end: 20060729
  4. ASPIRIN [Suspect]
     Route: 048
     Dates: start: 20060729, end: 20060729

REACTIONS (7)
  - BLOOD PRESSURE DECREASED [None]
  - BRADYCARDIA [None]
  - DEPRESSED LEVEL OF CONSCIOUSNESS [None]
  - ELECTROCARDIOGRAM QT PROLONGED [None]
  - INTENTIONAL OVERDOSE [None]
  - SHOCK HAEMORRHAGIC [None]
  - SUICIDE ATTEMPT [None]
